FAERS Safety Report 5876544-2 (Version None)
Quarter: 2008Q3

REPORT INFORMATION
  Report Type: 
  Country: None (occurrence: None)
  Receive Date: 20080910
  Receipt Date: 20080902
  Transmission Date: 20090109
  Serious: Yes (Hospitalization, Other)
  Sender: FDA-Public Use
  Company Number: IE-BAYER-200812052BNE

PATIENT
  Age: 51 Year
  Sex: Male
  Weight: 75 kg

DRUGS (10)
  1. MABCAMPATH [Suspect]
     Indication: CHRONIC LYMPHOCYTIC LEUKAEMIA
     Dosage: AS USED: 3 MG
     Route: 042
     Dates: start: 20080721, end: 20080721
  2. MABCAMPATH [Suspect]
     Dosage: AS USED: 10 MG
     Route: 042
     Dates: start: 20080722, end: 20080722
  3. MABCAMPATH [Suspect]
     Dosage: AS USED: 30 MG
     Route: 042
     Dates: start: 20080723, end: 20080723
  4. VALTREX [Concomitant]
     Indication: DRUG USE FOR UNKNOWN INDICATION
  5. ESOMEPRAZOLE [Concomitant]
     Indication: DRUG USE FOR UNKNOWN INDICATION
  6. CO-TRIMOXAZOLE [Concomitant]
     Indication: DRUG USE FOR UNKNOWN INDICATION
  7. PREDNISOLONE [Concomitant]
     Indication: DRUG USE FOR UNKNOWN INDICATION
  8. SERETIDE [Concomitant]
     Indication: DRUG USE FOR UNKNOWN INDICATION
     Dosage: TOTAL DAILY DOSE: 1000 ?G
  9. FLUCONAZOLE [Concomitant]
     Indication: DRUG USE FOR UNKNOWN INDICATION
  10. SULFINPYRAZONE [Concomitant]
     Indication: DRUG USE FOR UNKNOWN INDICATION
     Dosage: TOTAL DAILY DOSE: 200 MG

REACTIONS (3)
  - ABDOMINAL PAIN [None]
  - HEPATITIS [None]
  - PANCREATITIS [None]
